FAERS Safety Report 23331801 (Version 2)
Quarter: 2024Q1

REPORT INFORMATION
  Report Type: Spontaneous
  Country: BR (occurrence: BR)
  Receive Date: 20231222
  Receipt Date: 20240102
  Transmission Date: 20240410
  Serious: Yes (Other)
  Sender: FDA-Public Use
  Company Number: BR-PFIZER INC-PV202300202517

PATIENT
  Age: 28 Year
  Sex: Female

DRUGS (1)
  1. TALIGLUCERASE ALFA [Suspect]
     Active Substance: TALIGLUCERASE ALFA
     Indication: Gaucher^s disease
     Dosage: 3200 (16 BOTTLES) IU/KG - EVERY 15 DAYS
     Route: 042
     Dates: start: 202208, end: 20231122

REACTIONS (6)
  - Blood pressure increased [Not Recovered/Not Resolved]
  - Generalised oedema [Not Recovered/Not Resolved]
  - Throat irritation [Unknown]
  - Malaise [Unknown]
  - Dyspnoea [Unknown]
  - Treatment noncompliance [Unknown]
